FAERS Safety Report 5474592-8 (Version None)
Quarter: 2007Q3

REPORT INFORMATION
  Report Type: 
  Country: None (occurrence: None)
  Receive Date: 20070831
  Receipt Date: 20070504
  Transmission Date: 20080115
  Serious: No
  Sender: FDA-Public Use
  Company Number: 238233

PATIENT
  Sex: Female
  Weight: 64.4 kg

DRUGS (15)
  1. LUCENTIS [Suspect]
     Indication: MACULAR DEGENERATION
     Dosage: 1/MONTH, INTRAVITREAL
     Dates: start: 20060901
  2. AVASTIN [Suspect]
     Indication: MACULAR DEGENERATION
     Dosage: SINGLE, INTRAVITREAL
  3. ZOCOR [Concomitant]
  4. PLAVIX [Concomitant]
  5. PRILOSEC [Concomitant]
  6. SULAR [Concomitant]
  7. ADVAIR DISKUS 100/50 [Concomitant]
  8. ALBUTEROL (ALBUTEROL/ALBUTEROL SULFATE) [Concomitant]
  9. CALCIUM GLUCONATE [Concomitant]
  10. FIBER LAXATIVE (LAXATIVES NOS) [Concomitant]
  11. ASPIRIN [Concomitant]
  12. EYE VITAMIN (VITAMINS NOS) [Concomitant]
  13. CHOLESTYRAMINE [Concomitant]
  14. XANAX [Concomitant]
  15. OXAPROZIN [Concomitant]

REACTIONS (1)
  - EYE PAIN [None]
